FAERS Safety Report 7990626-0 (Version None)
Quarter: 2011Q4

REPORT INFORMATION
  Report Type: 
  Country: None (occurrence: None)
  Receive Date: 20111219
  Receipt Date: 20110720
  Transmission Date: 20120403
  Serious: No
  Sender: FDA-Public Use
  Company Number: US-ASTRAZENECA-2011SE37289

PATIENT
  Age: 57 Year
  Sex: Male

DRUGS (2)
  1. LISINOPRIL [Interacting]
     Route: 048
  2. CRESTOR [Suspect]
     Route: 048

REACTIONS (5)
  - PHARYNGEAL OEDEMA [None]
  - DRUG INTERACTION [None]
  - URTICARIA [None]
  - ADVERSE DRUG REACTION [None]
  - ADVERSE EVENT [None]
